FAERS Safety Report 16767943 (Version 2)
Quarter: 2019Q4

REPORT INFORMATION
  Report Type: Report from Study
  Country: CO (occurrence: CO)
  Receive Date: 20190903
  Receipt Date: 20191001
  Transmission Date: 20200122
  Serious: Yes (Other)
  Sender: FDA-Public Use
  Company Number: CO-ASTELLAS-2019US034895

PATIENT
  Age: 86 Year
  Sex: Male
  Weight: 57 kg

DRUGS (1)
  1. ENZALUTAMIDE [Suspect]
     Active Substance: ENZALUTAMIDE
     Indication: HORMONE-REFRACTORY PROSTATE CANCER
     Route: 048
     Dates: start: 20190717

REACTIONS (5)
  - Rectal haemorrhage [Recovering/Resolving]
  - Cough [Not Recovered/Not Resolved]
  - Dysphagia [Not Recovered/Not Resolved]
  - Oropharyngeal discomfort [Unknown]
  - Constipation [Recovering/Resolving]

NARRATIVE: CASE EVENT DATE: 20190727
